FAERS Safety Report 4370550-5 (Version None)
Quarter: 2004Q2

REPORT INFORMATION
  Report Type: 
  Country: None (occurrence: None)
  Receive Date: 20040601
  Receipt Date: 20040115
  Transmission Date: 20050107
  Serious: Yes (Other)
  Sender: FDA-Public Use
  Company Number: US063913

PATIENT
  Sex: Female

DRUGS (2)
  1. ENBREL [Suspect]
     Indication: RHEUMATOID ARTHRITIS
     Dosage: 25 MG, 2 IN 1 WEEK, SC
     Route: 058
     Dates: start: 20010101, end: 20031201
  2. METHOTREXATE [Suspect]

REACTIONS (3)
  - ALOPECIA [None]
  - DRY MOUTH [None]
  - SYSTEMIC LUPUS ERYTHEMATOSUS RASH [None]
